FAERS Safety Report 6642599-0 (Version None)
Quarter: 2010Q1

REPORT INFORMATION
  Report Type: 
  Country: None (occurrence: None)
  Receive Date: 20100319
  Receipt Date: 20100311
  Transmission Date: 20100710
  Serious: Yes (Other)
  Sender: FDA-Public Use
  Company Number: US-NOVOPROD-305524

PATIENT
  Sex: Female
  Weight: 107.3 kg

DRUGS (4)
  1. VICTOZA [Suspect]
     Indication: TYPE 2 DIABETES MELLITUS
     Dosage: 1.2 MG, QD
     Dates: start: 20100305, end: 20100309
  2. VICTOZA [Suspect]
     Dosage: .6 MG, QD
     Dates: start: 20100226, end: 20100304
  3. LISINOPRIL [Concomitant]
     Indication: BLOOD PRESSURE INCREASED
     Dosage: 10 MG, QD
     Route: 048
     Dates: start: 20070101
  4. GLYBURIDE [Concomitant]
     Indication: TYPE 2 DIABETES MELLITUS
     Dosage: 10 MG, BID
     Route: 048
     Dates: start: 20050101

REACTIONS (5)
  - DEHYDRATION [None]
  - FATIGUE [None]
  - OCULAR HYPERAEMIA [None]
  - PAIN [None]
  - VOMITING [None]
